FAERS Safety Report 20729469 (Version 7)
Quarter: 2022Q2

REPORT INFORMATION
  Report Type: Spontaneous
  Country: US (occurrence: US)
  Receive Date: 20220420
  Receipt Date: 20220527
  Transmission Date: 20220721
  Serious: No
  Sender: FDA-Public Use
  Company Number: US-UNITED THERAPEUTICS-UNT-2022-008139

PATIENT
  Age: 26 Year
  Sex: Female
  Weight: 100 kg

DRUGS (5)
  1. REMODULIN [Suspect]
     Active Substance: TREPROSTINIL
     Indication: Pulmonary arterial hypertension
     Dosage: 0.015 ?G/KG (PRE-FILLED WITH 2.4 ML PER CASSETTE AT THE RATE OF 21 MCL/HOUR), CONTINUING
     Route: 058
     Dates: start: 20220407
  2. REMODULIN [Suspect]
     Active Substance: TREPROSTINIL
     Dosage: UNK (PRE-FILLED WITH 2.2 ML PER CASSETTE AT THE RATE OF 19 MCL/HOUR), CONTINUING
     Route: 058
     Dates: start: 202204
  3. REMODULIN [Suspect]
     Active Substance: TREPROSTINIL
     Dosage: 0.023 ?G/KG (PRE-FILLED WITH 2.4 ML PER CASSETTE AT THE RATE OF 25 MCL/HOUR), CONTINUING
     Route: 058
     Dates: start: 202204
  4. REMODULIN [Suspect]
     Active Substance: TREPROSTINIL
     Dosage: UNK (PRE-FILLED WITH 3 ML PER CASSETTE AT THE RATE OF 28 MCL/HOUR), CONTINUING
     Route: 058
  5. ELIQUIS [Concomitant]
     Active Substance: APIXABAN
     Indication: Product used for unknown indication
     Dosage: UNK
     Route: 065

REACTIONS (13)
  - Infusion site pain [Recovering/Resolving]
  - Device use issue [Unknown]
  - Device failure [Recovered/Resolved]
  - Device leakage [Unknown]
  - Infusion site haemorrhage [Unknown]
  - Infusion site discharge [Unknown]
  - Purulent discharge [Unknown]
  - Infusion site swelling [Recovering/Resolving]
  - Catheter site erythema [Unknown]
  - Device infusion issue [Unknown]
  - Chills [Unknown]
  - Dyspnoea [Unknown]
  - Device dislocation [Unknown]

NARRATIVE: CASE EVENT DATE: 20220401
